FAERS Safety Report 9398340 (Version 3)
Quarter: 2013Q3

REPORT INFORMATION
  Report Type: Spontaneous
  Country: JP (occurrence: JP)
  Receive Date: 20130712
  Receipt Date: 20130909
  Transmission Date: 20140515
  Serious: Yes (Hospitalization)
  Sender: FDA-Public Use
  Company Number: JP-GLAXOSMITHKLINE-B0906541A

PATIENT
  Age: 39 Year
  Sex: Female

DRUGS (4)
  1. LAMICTAL [Suspect]
     Indication: BIPOLAR I DISORDER
     Dosage: 250MG TWICE PER DAY
     Route: 048
     Dates: start: 20110819, end: 20111024
  2. LIMAS [Concomitant]
     Indication: BIPOLAR I DISORDER
     Dosage: 400MG TWICE PER DAY
     Route: 048
     Dates: start: 20100324
  3. SEROQUEL [Concomitant]
     Indication: BIPOLAR I DISORDER
     Dosage: 100MG THREE TIMES PER DAY
     Route: 048
     Dates: start: 20090727, end: 20111024
  4. LENDORMIN [Concomitant]
     Indication: BIPOLAR I DISORDER
     Dosage: .25MG PER DAY
     Route: 048
     Dates: start: 20110912, end: 20121121

REACTIONS (1)
  - Bipolar I disorder [Recovered/Resolved]
